FAERS Safety Report 5968429-8 (Version None)
Quarter: 2008Q4

REPORT INFORMATION
  Report Type: 
  Country: None (occurrence: None)
  Receive Date: 20081126
  Receipt Date: 20081117
  Transmission Date: 20090506
  Serious: Yes (Other)
  Sender: FDA-Public Use
  Company Number: FR-JNJFOC-20081104343

PATIENT
  Sex: Female

DRUGS (1)
  1. REMINYL LP [Suspect]
     Indication: DRUG USE FOR UNKNOWN INDICATION
     Dosage: 1-1-1
     Route: 048

REACTIONS (2)
  - DRUG PRESCRIBING ERROR [None]
  - NO ADVERSE EVENT [None]
